FAERS Safety Report 15408844 (Version 1)
Quarter: 2018Q3

REPORT INFORMATION
  Report Type: Report from Study
  Country: GE (occurrence: GE)
  Receive Date: 20180920
  Receipt Date: 20180920
  Transmission Date: 20181010
  Serious: Yes (Other)
  Sender: FDA-Public Use
  Company Number: GE-JNJFOC-20180921044

PATIENT
  Age: 63 Year
  Sex: Female
  Weight: 64.6 kg

DRUGS (43)
  1. MOXIFLOXACIN. [Suspect]
     Active Substance: MOXIFLOXACIN
     Indication: PULMONARY TUBERCULOSIS
     Route: 048
     Dates: start: 20180730, end: 20180731
  2. BEDAQUILINE [Suspect]
     Active Substance: BEDAQUILINE
     Indication: PULMONARY TUBERCULOSIS
     Route: 048
     Dates: start: 20180730, end: 20180731
  3. PRETOMANID [Suspect]
     Active Substance: PRETOMANID
     Indication: PULMONARY TUBERCULOSIS
     Route: 048
     Dates: start: 20180801, end: 20180826
  4. SODIUM CHLORIDE. [Concomitant]
     Active Substance: SODIUM CHLORIDE
     Indication: POISONING
     Route: 042
     Dates: start: 20180817, end: 20180904
  5. ANALGINE [Concomitant]
     Indication: PYREXIA
     Route: 048
     Dates: start: 20180809, end: 20180811
  6. ANALGINE [Concomitant]
     Indication: PYREXIA
     Route: 048
     Dates: start: 20180812, end: 20180813
  7. ANALGINE [Concomitant]
     Indication: PYREXIA
     Route: 048
     Dates: start: 20180815, end: 20180816
  8. REAMBERIN [Concomitant]
     Indication: POISONING
     Route: 042
     Dates: start: 20180818, end: 20180818
  9. ANALGINE [Concomitant]
     Indication: PYREXIA
     Route: 048
     Dates: start: 20180818, end: 20180818
  10. RINGER SOL [Concomitant]
     Indication: POISONING
     Route: 042
     Dates: start: 20180819, end: 20180819
  11. MEROPENEM. [Concomitant]
     Active Substance: MEROPENEM
     Indication: LEUKOCYTOSIS
     Route: 042
     Dates: start: 20180817, end: 20180826
  12. SUPRASTIN [Concomitant]
     Active Substance: CHLOROPYRAMINE HYDROCHLORIDE
     Indication: RASH MACULO-PAPULAR
     Dosage: ONCE
     Route: 030
     Dates: start: 20180826, end: 20180826
  13. SUPRASTIN [Concomitant]
     Active Substance: CHLOROPYRAMINE HYDROCHLORIDE
     Indication: PYREXIA
     Dosage: ONCE
     Route: 030
     Dates: start: 20180826, end: 20180826
  14. RINGER SOL [Concomitant]
     Indication: POISONING
     Route: 042
     Dates: start: 20180817, end: 20180817
  15. REAMBERIN [Concomitant]
     Indication: POISONING
     Route: 042
     Dates: start: 20180820, end: 20180820
  16. DEXAMETHASONE. [Concomitant]
     Active Substance: DEXAMETHASONE
     Indication: RASH MACULO-PAPULAR
     Route: 030
     Dates: start: 20180827, end: 20180830
  17. FUROSEMIDE. [Concomitant]
     Active Substance: FUROSEMIDE
     Indication: RASH MACULO-PAPULAR
     Route: 030
     Dates: start: 20180827, end: 20180829
  18. MOXIFLOXACIN. [Suspect]
     Active Substance: MOXIFLOXACIN
     Indication: PULMONARY TUBERCULOSIS
     Route: 048
     Dates: start: 20180801, end: 20180826
  19. MOXIFLOXACIN. [Suspect]
     Active Substance: MOXIFLOXACIN
     Indication: PULMONARY TUBERCULOSIS
     Route: 048
     Dates: start: 20180831, end: 20180831
  20. ANALGINE [Concomitant]
     Indication: PYREXIA
     Route: 048
     Dates: start: 20180822, end: 20180822
  21. REAMBERIN [Concomitant]
     Indication: POISONING
     Route: 042
     Dates: start: 20180822, end: 20180822
  22. BILASTINE [Concomitant]
     Active Substance: BILASTINE
     Indication: RASH
     Route: 048
     Dates: start: 20180827, end: 20180830
  23. PRETOMANID [Suspect]
     Active Substance: PRETOMANID
     Indication: PULMONARY TUBERCULOSIS
     Route: 048
     Dates: start: 20180831, end: 20180831
  24. SODIUM CHLORIDE. [Concomitant]
     Active Substance: SODIUM CHLORIDE
     Indication: POISONING
     Route: 042
     Dates: start: 20180803, end: 20180803
  25. ANALGINE [Concomitant]
     Indication: PYREXIA
     Route: 048
     Dates: start: 20180814, end: 20180814
  26. ANALGINE [Concomitant]
     Indication: PYREXIA
     Route: 048
     Dates: start: 20180820, end: 20180820
  27. RINGER SOL [Concomitant]
     Indication: POISONING
     Route: 042
     Dates: start: 20180821, end: 20180821
  28. RINGER SOL [Concomitant]
     Indication: POISONING
     Route: 042
     Dates: start: 20180823, end: 20180823
  29. REAMBERIN [Concomitant]
     Indication: POISONING
     Route: 042
     Dates: start: 20180808, end: 20180808
  30. ASPARCAM [Concomitant]
     Indication: PROPHYLAXIS
     Route: 048
     Dates: start: 20180817, end: 20180904
  31. BEDAQUILINE [Suspect]
     Active Substance: BEDAQUILINE
     Indication: PULMONARY TUBERCULOSIS
     Route: 048
     Dates: start: 20180801, end: 20180826
  32. PRETOMANID [Suspect]
     Active Substance: PRETOMANID
     Indication: PULMONARY TUBERCULOSIS
     Route: 048
     Dates: start: 20180730, end: 20180731
  33. PYRAZINAMIDE. [Suspect]
     Active Substance: PYRAZINAMIDE
     Indication: PULMONARY TUBERCULOSIS
     Route: 048
     Dates: start: 20180801, end: 20180826
  34. ANALGINE [Concomitant]
     Indication: PYREXIA
     Route: 048
     Dates: start: 20180817, end: 20180817
  35. RINGER SOL [Concomitant]
     Indication: POISONING
     Route: 042
     Dates: start: 20180807, end: 20180807
  36. BEDAQUILINE [Suspect]
     Active Substance: BEDAQUILINE
     Indication: PULMONARY TUBERCULOSIS
     Route: 048
     Dates: start: 20180831, end: 20180831
  37. PYRAZINAMIDE. [Suspect]
     Active Substance: PYRAZINAMIDE
     Indication: PULMONARY TUBERCULOSIS
     Route: 048
     Dates: start: 20180730, end: 20180731
  38. PYRAZINAMIDE. [Suspect]
     Active Substance: PYRAZINAMIDE
     Indication: PULMONARY TUBERCULOSIS
     Route: 048
     Dates: start: 20180831, end: 20180831
  39. SODIUM CHLORIDE. [Concomitant]
     Active Substance: SODIUM CHLORIDE
     Indication: POISONING
     Route: 042
     Dates: start: 20180804, end: 20180804
  40. ANALGINE [Concomitant]
     Indication: PYREXIA
     Route: 048
     Dates: start: 20180808, end: 20180808
  41. ANALGINE [Concomitant]
     Indication: PYREXIA
     Route: 048
     Dates: start: 20180821, end: 20180821
  42. RINGER SOL [Concomitant]
     Indication: POISONING
     Route: 042
     Dates: start: 20180825, end: 20180826
  43. REAMBERIN [Concomitant]
     Indication: POISONING
     Route: 042
     Dates: start: 20180824, end: 20180824

REACTIONS (1)
  - Pyrexia [Not Recovered/Not Resolved]

NARRATIVE: CASE EVENT DATE: 20180831
